FAERS Safety Report 15900763 (Version 1)
Quarter: 2019Q1

REPORT INFORMATION
  Report Type: Spontaneous
  Country: US (occurrence: US)
  Receive Date: 20190201
  Receipt Date: 20190201
  Transmission Date: 20190417
  Serious: Yes (Hospitalization, Other)
  Sender: FDA-Public Use
  Company Number: US-GALDERMA-US19003280

PATIENT
  Sex: Female

DRUGS (2)
  1. CLOBEX [Suspect]
     Active Substance: CLOBETASOL PROPIONATE
     Indication: ALOPECIA
     Dosage: 0.05%
     Route: 061
  2. CLOBEX [Suspect]
     Active Substance: CLOBETASOL PROPIONATE
     Indication: ALOPECIA
     Dosage: 0.05%
     Route: 061

REACTIONS (12)
  - Vestibular disorder [Not Recovered/Not Resolved]
  - Purulent discharge [Not Recovered/Not Resolved]
  - Hair disorder [Not Recovered/Not Resolved]
  - Swelling of eyelid [Not Recovered/Not Resolved]
  - Erythema of eyelid [Not Recovered/Not Resolved]
  - Eyelid irritation [Not Recovered/Not Resolved]
  - Product use in unapproved indication [Recovered/Resolved]
  - Bedridden [Not Recovered/Not Resolved]
  - Skin atrophy [Not Recovered/Not Resolved]
  - Intervertebral disc protrusion [Not Recovered/Not Resolved]
  - Product use issue [Recovered/Resolved]
  - Staphylococcal infection [Not Recovered/Not Resolved]
